FAERS Safety Report 15236813 (Version 2)
Quarter: 2019Q2

REPORT INFORMATION
  Report Type: Spontaneous
  Country: US (occurrence: US)
  Receive Date: 20180803
  Receipt Date: 20190425
  Transmission Date: 20190711
  Serious: No
  Sender: FDA-Public Use
  Company Number: US-PFIZER INC-2018308158

PATIENT
  Age: 68 Year
  Sex: Female

DRUGS (3)
  1. MACRODANTIN [Suspect]
     Active Substance: NITROFURANTOIN
     Dosage: UNK
  2. ZYLOPRIM [Suspect]
     Active Substance: ALLOPURINOL
     Dosage: UNK
  3. LORABID [Suspect]
     Active Substance: LORACARBEF
     Dosage: UNK

REACTIONS (1)
  - Drug hypersensitivity [Unknown]
